FAERS Safety Report 12214362 (Version 1)
Quarter: 2016Q1

REPORT INFORMATION
  Report Type: Spontaneous
  Country: ES (occurrence: ES)
  Receive Date: 20160328
  Receipt Date: 20160328
  Transmission Date: 20160526
  Serious: Yes (Hospitalization, Other)
  Sender: FDA-Public Use
  Company Number: ES-TEVA-647341ISR

PATIENT
  Age: 84 Year
  Sex: Female

DRUGS (10)
  1. SULPIRIDE [Suspect]
     Active Substance: SULPIRIDE
  2. SOLIFENACIN [Suspect]
     Active Substance: SOLIFENACIN
     Indication: URINARY INCONTINENCE
  3. DIGOXIN. [Suspect]
     Active Substance: DIGOXIN
  4. CANDESARTAN [Concomitant]
     Active Substance: CANDESARTAN
  5. ACENOCOUMAROL [Concomitant]
     Active Substance: ACENOCOUMAROL
  6. SIMVASTATIN. [Concomitant]
     Active Substance: SIMVASTATIN
  7. ESCITALOPRAM [Suspect]
     Active Substance: ESCITALOPRAM OXALATE
  8. FUROSEMIDE. [Concomitant]
     Active Substance: FUROSEMIDE
  9. LEVOFLOXACIN. [Suspect]
     Active Substance: LEVOFLOXACIN
     Indication: RESPIRATORY TRACT INFECTION
  10. AMIODARONE [Suspect]
     Active Substance: AMIODARONE
     Route: 042

REACTIONS (4)
  - Electrocardiogram QT prolonged [Recovered/Resolved]
  - Torsade de pointes [Recovered/Resolved]
  - Hypokalaemia [Recovered/Resolved]
  - Hypomagnesaemia [Recovered/Resolved]
